FAERS Safety Report 19064157 (Version 1)
Quarter: 2021Q1

REPORT INFORMATION
  Report Type: Spontaneous
  Country: TR (occurrence: TR)
  Receive Date: 20210326
  Receipt Date: 20210326
  Transmission Date: 20210420
  Serious: Yes (Other)
  Sender: FDA-Public Use
  Company Number: TR-ASTRAZENECA-2021A191256

PATIENT
  Age: 735 Month
  Sex: Female
  Weight: 80 kg

DRUGS (7)
  1. GLUCOPHAGE [Concomitant]
     Active Substance: METFORMIN HYDROCHLORIDE
     Indication: TYPE 2 DIABETES MELLITUS
     Dosage: DOSE:2X1?START DATE:1 YEAR AGO
     Route: 048
  2. FORZIGA [Suspect]
     Active Substance: DAPAGLIFLOZIN
     Indication: TYPE 2 DIABETES MELLITUS
     Dosage: 1X1
     Route: 048
     Dates: start: 201910, end: 202103
  3. EUTHYROX [Concomitant]
     Active Substance: LEVOTHYROXINE SODIUM
     Indication: HYPOTHYROIDISM
     Dosage: DOSE:1X75 MCG?START DATE:9 YEARS AGO
     Route: 048
  4. D?COLEFOR [Concomitant]
     Indication: SUPPLEMENTATION THERAPY
     Dosage: ONCE A WEEK
     Route: 048
  5. MELOX [Concomitant]
     Active Substance: MELOXICAM
     Indication: BONE PAIN
     Dosage: WHEN SHE HAS PAIN
     Route: 048
  6. NORVASC [Concomitant]
     Active Substance: AMLODIPINE BESYLATE
     Indication: HYPERTENSION
     Dosage: DOSE:1X1?START DATE:1 YEAR AGO
     Route: 048
  7. BYETTA [Concomitant]
     Active Substance: EXENATIDE
     Indication: TYPE 2 DIABETES MELLITUS
     Dosage: DOSE:1X1?START DATE:6 YEARS AGO
     Route: 058

REACTIONS (2)
  - Foot fracture [Unknown]
  - Bone pain [Recovered/Resolved]

NARRATIVE: CASE EVENT DATE: 202004
